FAERS Safety Report 6252656-9 (Version None)
Quarter: 2009Q2

REPORT INFORMATION
  Report Type: 
  Country: None (occurrence: None)
  Receive Date: 20090629
  Receipt Date: 20090629
  Transmission Date: 20091009
  Serious: Yes (Hospitalization)
  Sender: FDA-Public Use
  Company Number: None

PATIENT
  Sex: Male
  Weight: 75.91 kg

DRUGS (4)
  1. FLUOROURACIL [Suspect]
     Dosage: 5550 MG
  2. CISPLATIN [Suspect]
     Dosage: 111 MG
  3. ERBITUX [Suspect]
     Dosage: 1389 MG
  4. ELLENCE [Suspect]
     Dosage: 92.5 MG

REACTIONS (5)
  - BLOOD POTASSIUM DECREASED [None]
  - CAECITIS [None]
  - COLITIS ISCHAEMIC [None]
  - DEHYDRATION [None]
  - RENAL FAILURE [None]
